FAERS Safety Report 15963543 (Version 1)
Quarter: 2019Q1

REPORT INFORMATION
  Report Type: Other
  Country: US (occurrence: US)
  Receive Date: 20190214
  Receipt Date: 20190214
  Transmission Date: 20190417
  Serious: Yes (Hospitalization)
  Sender: FDA-Public Use
  Company Number: US-WALMART-2062696

PATIENT
  Sex: Male

DRUGS (4)
  1. IBUPROFEN 200 [Concomitant]
     Active Substance: IBUPROFEN
  2. NIGHTTIME SLEEP AID MAXIMUM STRENGTH [Suspect]
     Active Substance: DIPHENHYDRAMINE HYDROCHLORIDE
     Indication: ACCIDENTAL EXPOSURE TO PRODUCT
     Route: 048
  3. NORCO [Concomitant]
     Active Substance: ACETAMINOPHEN\HYDROCODONE BITARTRATE
  4. BENADRYL [Concomitant]
     Active Substance: DIPHENHYDRAMINE HYDROCHLORIDE

REACTIONS (6)
  - Product packaging confusion [None]
  - Dysarthria [None]
  - Limb discomfort [None]
  - Dry mouth [None]
  - Confusional state [None]
  - Wrong product administered [None]
